FAERS Safety Report 7404804-2 (Version None)
Quarter: 2011Q2

REPORT INFORMATION
  Report Type: 
  Country: None (occurrence: None)
  Receive Date: 20110411
  Receipt Date: 20110405
  Transmission Date: 20111010
  Serious: Yes (Other)
  Sender: FDA-Public Use
  Company Number: BR-BAYER-200912002LA

PATIENT
  Age: 59 Year
  Sex: Female

DRUGS (7)
  1. BETAFERON [Suspect]
     Indication: MULTIPLE SCLEROSIS
     Route: 058
     Dates: start: 19990101
  2. PROPRANOLOL [Concomitant]
     Indication: ANGINA PECTORIS
     Dosage: UNK
  3. ALDOMET [Concomitant]
     Indication: HYPERTENSION
     Dosage: UNK
  4. ASPIRIN [Concomitant]
     Indication: HYPERTENSION
     Dosage: UNK
  5. BETAFERON [Suspect]
  6. ALDOMET [Concomitant]
  7. PROPRANOLOL [Concomitant]

REACTIONS (3)
  - CHROMATOPSIA [None]
  - VISUAL ACUITY REDUCED [None]
  - GLAUCOMA [None]
